FAERS Safety Report 16864388 (Version 1)
Quarter: 2019Q3

REPORT INFORMATION
  Report Type: Report from Study
  Country: None (occurrence: RO)
  Receive Date: 20190928
  Receipt Date: 20190928
  Transmission Date: 20191005
  Serious: Yes (Hospitalization)
  Sender: FDA-Public Use
  Company Number: RO-ABBVIE-19K-135-2941638-00

PATIENT
  Age: 32 Year
  Sex: Male

DRUGS (5)
  1. CALCIUM + D3 [Concomitant]
     Active Substance: CALCIUM\CHOLECALCIFEROL
     Indication: PRODUCT USED FOR UNKNOWN INDICATION
     Route: 048
     Dates: start: 2018
  2. FOLIC ACID. [Concomitant]
     Active Substance: FOLIC ACID
     Indication: PRODUCT USED FOR UNKNOWN INDICATION
     Route: 048
     Dates: start: 2018
  3. HUMIRA [Suspect]
     Active Substance: ADALIMUMAB
     Indication: CROHN^S DISEASE
     Route: 058
     Dates: start: 20140515
  4. SALOFALK [Concomitant]
     Indication: INTESTINAL STENOSIS
     Route: 054
     Dates: start: 2015
  5. PENTASA [Concomitant]
     Active Substance: MESALAMINE
     Indication: INTESTINAL STENOSIS
     Route: 048
     Dates: start: 2015

REACTIONS (4)
  - Gastrointestinal inflammation [Unknown]
  - Intestinal stenosis [Recovered/Resolved]
  - Stenosis [Not Recovered/Not Resolved]
  - Intestinal stenosis [Recovered/Resolved]

NARRATIVE: CASE EVENT DATE: 2016
